FAERS Safety Report 5583639-X (Version None)
Quarter: 2007Q4

REPORT INFORMATION
  Report Type: 
  Country: None (occurrence: None)
  Receive Date: 20071231
  Receipt Date: 20071214
  Transmission Date: 20080405
  Serious: Yes (Hospitalization)
  Sender: FDA-Public Use
  Company Number: 2007BI026606

PATIENT
  Age: 65 Year
  Sex: Female

DRUGS (1)
  1. AVONEX [Suspect]
     Indication: MULTIPLE SCLEROSIS
     Dosage: 30 UG QW IM
     Route: 030
     Dates: start: 19960501

REACTIONS (6)
  - IMPAIRED HEALING [None]
  - PAIN [None]
  - SALIVARY GLAND CALCULUS [None]
  - SCAR [None]
  - SIALOADENITIS [None]
  - SWELLING [None]
